FAERS Safety Report 21776905 (Version 2)
Quarter: 2024Q4

REPORT INFORMATION
  Report Type: Spontaneous
  Country: US (occurrence: US)
  Receive Date: 20221226
  Receipt Date: 20241029
  Transmission Date: 20250114
  Serious: No
  Sender: BIOGEN
  Company Number: US-BIOGEN-2022BI01173299

PATIENT
  Sex: Female

DRUGS (1)
  1. VUMERITY [Suspect]
     Active Substance: DIROXIMEL FUMARATE
     Indication: Multiple sclerosis
     Route: 050
     Dates: start: 20210927

REACTIONS (3)
  - Prescribed underdose [Unknown]
  - Blood test abnormal [Unknown]
  - Lymphocyte count decreased [Not Recovered/Not Resolved]
